FAERS Safety Report 24737711 (Version 1)
Quarter: 2024Q4

REPORT INFORMATION
  Report Type: Spontaneous
  Country: FR (occurrence: FR)
  Receive Date: 20241216
  Receipt Date: 20241216
  Transmission Date: 20250115
  Serious: Yes (Other)
  Sender: MYLAN
  Company Number: None

PATIENT
  Age: 18 Year
  Sex: Female
  Weight: 52 kg

DRUGS (2)
  1. CLOMIPRAMINE [Suspect]
     Active Substance: CLOMIPRAMINE
     Indication: Depression
     Dosage: 75 MILLIGRAM, QD
     Route: 048
  2. CYAMEMAZINE [Suspect]
     Active Substance: CYAMEMAZINE
     Indication: Obsessive-compulsive disorder
     Dosage: 25 DROP (1/12 MILLILITRE), QD
     Route: 048

REACTIONS (1)
  - Hyperprolactinaemia [Not Recovered/Not Resolved]

NARRATIVE: CASE EVENT DATE: 20240101
